FAERS Safety Report 11230318 (Version 1)
Quarter: 2015Q3

REPORT INFORMATION
  Report Type: Spontaneous
  Country: US (occurrence: US)
  Receive Date: 20150701
  Receipt Date: 20150701
  Transmission Date: 20151125
  Serious: No
  Sender: FDA-Public Use
  Company Number: US-ACCORD-030964

PATIENT
  Age: 75 Year
  Sex: Male
  Weight: 72.73 kg

DRUGS (7)
  1. ASCORBIC ACID. [Concomitant]
     Active Substance: ASCORBIC ACID
  2. MAGNESIUM OXIDE. [Concomitant]
     Active Substance: MAGNESIUM OXIDE
  3. ACCORD^S HYDROCHLOROTHIAZIDE [Suspect]
     Active Substance: HYDROCHLOROTHIAZIDE
     Indication: HYPERTENSION
     Route: 048
     Dates: start: 2014
  4. ADVIL [Concomitant]
     Active Substance: IBUPROFEN
     Indication: ARTHRITIS
     Dosage: ADVIL PRN
  5. CALCIUM [Concomitant]
     Active Substance: CALCIUM
  6. ECHINACEA PURPUREA [Concomitant]
     Active Substance: ECHINACEA PURPUREA
     Dosage: ECHINACEA PRN
  7. ZINC [Concomitant]
     Active Substance: ZINC\ZINC CHLORIDE

REACTIONS (1)
  - Skin discolouration [Not Recovered/Not Resolved]

NARRATIVE: CASE EVENT DATE: 201412
